FAERS Safety Report 6143581-2 (Version None)
Quarter: 2009Q2

REPORT INFORMATION
  Report Type: 
  Country: None (occurrence: None)
  Receive Date: 20090403
  Receipt Date: 20090326
  Transmission Date: 20091009
  Serious: Yes (Other)
  Sender: FDA-Public Use
  Company Number: CA-JNJFOC-20090205455

PATIENT
  Sex: Female

DRUGS (7)
  1. EXTRA STRENGTH TYLENOL [Suspect]
     Indication: PAIN
  2. EXTRA STRENGTH TYLENOL [Suspect]
     Indication: HEADACHE
  3. EXTRA STRENGTH TYLENOL [Suspect]
     Indication: PYREXIA
  4. TYLENOL (CAPLET) [Suspect]
  5. TYLENOL (CAPLET) [Suspect]
     Indication: DRUG USE FOR UNKNOWN INDICATION
  6. TEGRETOL-XR [Interacting]
     Indication: TEMPORAL LOBE EPILEPSY
     Route: 048
  7. ACLASTA [Concomitant]
     Indication: OSTEOPOROSIS

REACTIONS (2)
  - DRUG INTERACTION [None]
  - EPILEPSY [None]
